FAERS Safety Report 5493145-9 (Version None)
Quarter: 2007Q4

REPORT INFORMATION
  Report Type: 
  Country: None (occurrence: None)
  Receive Date: 20071023
  Receipt Date: 20071010
  Transmission Date: 20080405
  Serious: Yes (Other)
  Sender: FDA-Public Use
  Company Number: FR-AMGEN-UK247593

PATIENT
  Sex: Female

DRUGS (2)
  1. PANITUMUMAB [Suspect]
     Indication: COLORECTAL CANCER
     Route: 041
     Dates: start: 20070820
  2. PANITUMUMAB - OBSERVATION/NO DRUG [Suspect]
     Indication: COLORECTAL CANCER

REACTIONS (1)
  - OVERDOSE [None]
